FAERS Safety Report 7672787-6 (Version None)
Quarter: 2011Q3

REPORT INFORMATION
  Report Type: 
  Country: None (occurrence: None)
  Receive Date: 20110804
  Receipt Date: 20110715
  Transmission Date: 20111222
  Serious: Yes (Death, Other)
  Sender: FDA-Public Use
  Company Number: US-2011-10512

PATIENT
  Age: 23 Year
  Sex: Male

DRUGS (2)
  1. CYCLOPHOSPHAMIDE [Concomitant]
  2. BUSULFAN [Suspect]
     Indication: STEM CELL TRANSPLANT

REACTIONS (3)
  - PNEUMONITIS [None]
  - RIGHT VENTRICULAR FAILURE [None]
  - PULMONARY FIBROSIS [None]
